FAERS Safety Report 14783567 (Version 6)
Quarter: 2018Q3

REPORT INFORMATION
  Report Type: Report from Study
  Country: US (occurrence: US)
  Receive Date: 20180420
  Receipt Date: 20180830
  Transmission Date: 20181010
  Serious: Yes (Other)
  Sender: FDA-Public Use
  Company Number: US-JNJFOC-20180424773

PATIENT
  Age: 85 Year
  Sex: Female

DRUGS (14)
  1. NORVASC [Concomitant]
     Active Substance: AMLODIPINE BESYLATE
  2. COUMADIN [Concomitant]
     Active Substance: WARFARIN SODIUM
  3. MULTAQ [Concomitant]
     Active Substance: DRONEDARONE
  4. DULCOLAX NOS [Concomitant]
     Active Substance: BISACODYL OR DOCUSATE SODIUM
  5. IMBRUVICA [Suspect]
     Active Substance: IBRUTINIB
     Indication: WALDENSTROM^S MACROGLOBULINAEMIA
     Route: 048
     Dates: start: 20180302, end: 20180507
  6. ASPIRIN. [Concomitant]
     Active Substance: ASPIRIN
  7. FLUTICASONE. [Concomitant]
     Active Substance: FLUTICASONE
  8. HYOSCYAMINE. [Concomitant]
     Active Substance: HYOSCYAMINE
  9. DEXAMETHASONE. [Concomitant]
     Active Substance: DEXAMETHASONE
  10. IMBRUVICA [Suspect]
     Active Substance: IBRUTINIB
     Indication: WALDENSTROM^S MACROGLOBULINAEMIA
     Route: 048
     Dates: start: 20180228
  11. IMBRUVICA [Suspect]
     Active Substance: IBRUTINIB
     Indication: WALDENSTROM^S MACROGLOBULINAEMIA
     Route: 048
     Dates: start: 20180511
  12. COREG [Concomitant]
     Active Substance: CARVEDILOL
  13. OSPHENA [Concomitant]
     Active Substance: OSPEMIFENE
  14. NYSTATIN. [Concomitant]
     Active Substance: NYSTATIN

REACTIONS (8)
  - Abdominal discomfort [Unknown]
  - Blindness [Not Recovered/Not Resolved]
  - Incorrect dose administered [Unknown]
  - Lack of spontaneous speech [Unknown]
  - Constipation [Recovering/Resolving]
  - Off label use [Unknown]
  - Brain neoplasm [Not Recovered/Not Resolved]
  - Abdominal pain upper [Recovering/Resolving]

NARRATIVE: CASE EVENT DATE: 20180228
